FAERS Safety Report 17257822 (Version 1)
Quarter: 2020Q1

REPORT INFORMATION
  Report Type: Spontaneous
  Country: US (occurrence: US)
  Receive Date: 20200110
  Receipt Date: 20200110
  Transmission Date: 20200409
  Serious: No
  Sender: FDA-Public Use
  Company Number: US-PERRIGO-19US001254

PATIENT
  Age: 13 Month
  Sex: Male

DRUGS (3)
  1. IBUPROFEN. [Suspect]
     Active Substance: IBUPROFEN
     Dosage: 75 MG, SINGLE
     Route: 048
     Dates: start: 20181227, end: 20181227
  2. IBUPROFEN. [Suspect]
     Active Substance: IBUPROFEN
     Dosage: 75 MG, SINGLE
     Route: 048
     Dates: start: 20181224, end: 20181224
  3. IBUPROFEN. [Suspect]
     Active Substance: IBUPROFEN
     Indication: TEETHING
     Dosage: 75 MG QHS PRN
     Route: 048
     Dates: start: 201812, end: 201812

REACTIONS (1)
  - Vomiting [Recovered/Resolved]

NARRATIVE: CASE EVENT DATE: 20181224
